FAERS Safety Report 6074763-6 (Version None)
Quarter: 2009Q1

REPORT INFORMATION
  Report Type: 
  Country: None (occurrence: None)
  Receive Date: 20090210
  Receipt Date: 20090129
  Transmission Date: 20090719
  Serious: Yes (Other)
  Sender: FDA-Public Use
  Company Number: 08US001096

PATIENT
  Age: 36 Year
  Sex: Male

DRUGS (1)
  1. VALPROIC ACID [Suspect]
     Indication: CONVULSION
     Dosage: 500 MG, BID, ORAL, 750 MG, BID, ORAL, 500 MG, MORNING, ORAL, 750 MG, BEDTIME
     Route: 048

REACTIONS (7)
  - CONVULSION [None]
  - IMPAIRED DRIVING ABILITY [None]
  - POSTICTAL STATE [None]
  - SEDATION [None]
  - THERAPEUTIC RESPONSE UNEXPECTED WITH DRUG SUBSTITUTION [None]
  - THREAT OF REDUNDANCY [None]
  - TREMOR [None]
